FAERS Safety Report 6572066-4 (Version None)
Quarter: 2010Q1

REPORT INFORMATION
  Report Type: 
  Country: None (occurrence: None)
  Receive Date: 20100205
  Receipt Date: 20100125
  Transmission Date: 20100710
  Serious: Yes (Death)
  Sender: FDA-Public Use
  Company Number: GB-WATSON-2010-00898

PATIENT

DRUGS (3)
  1. LIDOCAINE HYDROCHLORIDE (WATSON LABORATORIES) [Suspect]
     Indication: LOCAL ANAESTHESIA
     Dosage: UNK
  2. DEPO-MEDROL [Suspect]
     Indication: LOCAL ANAESTHESIA
  3. EMLA [Suspect]
     Indication: LOCAL ANAESTHESIA

REACTIONS (21)
  - ANAPHYLACTIC REACTION [None]
  - ANAPHYLACTIC SHOCK [None]
  - ANGIOEDEMA [None]
  - BRONCHOSPASM [None]
  - CARDIAC ARREST [None]
  - CEREBRAL HAEMORRHAGE [None]
  - COMA [None]
  - CONVULSION [None]
  - CORONARY ARTERY THROMBOSIS [None]
  - DRUG INTERACTION [None]
  - HEADACHE [None]
  - HYPERTENSION [None]
  - HYPOTENSION [None]
  - MEDICATION ERROR [None]
  - OVERDOSE [None]
  - RESPIRATORY DEPRESSION [None]
  - RESPIRATORY FAILURE [None]
  - SHOCK [None]
  - SUDDEN DEATH [None]
  - THROMBOCYTOPENIA [None]
  - VOMITING [None]
